FAERS Safety Report 7114041-7 (Version None)
Quarter: 2010Q4

REPORT INFORMATION
  Report Type: 
  Country: None (occurrence: None)
  Receive Date: 20101119
  Receipt Date: 20101112
  Transmission Date: 20110411
  Serious: Yes (Life-Threatening, Hospitalization)
  Sender: FDA-Public Use
  Company Number: Z0006410A

PATIENT
  Sex: Female
  Weight: 62 kg

DRUGS (3)
  1. GW642444 [Suspect]
     Indication: CHRONIC OBSTRUCTIVE PULMONARY DISEASE
     Dosage: 25MCG PER DAY
     Route: 055
     Dates: start: 20100910, end: 20101103
  2. ADVAIR DISKUS 100/50 [Suspect]
     Indication: CHRONIC OBSTRUCTIVE PULMONARY DISEASE
     Route: 055
     Dates: start: 20100601, end: 20100910
  3. HYDROCORTISONE [Concomitant]

REACTIONS (6)
  - AMNESIA [None]
  - CHRONIC OBSTRUCTIVE PULMONARY DISEASE [None]
  - CONDITION AGGRAVATED [None]
  - HEART RATE INCREASED [None]
  - LUNG INFECTION [None]
  - LUNG INFILTRATION [None]
